FAERS Safety Report 17224559 (Version 1)
Quarter: 2020Q1

REPORT INFORMATION
  Report Type: Spontaneous
  Country: US (occurrence: US)
  Receive Date: 20191231
  Receipt Date: 20191231
  Transmission Date: 20200409
  Serious: Yes (Disabling)
  Sender: FDA-Public Use
  Company Number: None

PATIENT
  Sex: Male
  Weight: 72 kg

DRUGS (1)
  1. CLARAVIS [Suspect]
     Active Substance: ISOTRETINOIN
     Indication: ACNE
     Dosage: ?          QUANTITY:1 CAPSULE(S);?
     Route: 048

REACTIONS (13)
  - Panic attack [None]
  - Headache [None]
  - Muscle spasms [None]
  - Amblyopia [None]
  - Hypoacusis [None]
  - Anxiety [None]
  - Vision blurred [None]
  - Tinnitus [None]
  - Gastrointestinal disorder [None]
  - Astigmatism [None]
  - Hallucination [None]
  - Myalgia [None]
  - Vertigo [None]
